FAERS Safety Report 24624048 (Version 1)
Quarter: 2024Q4

REPORT INFORMATION
  Report Type: Spontaneous
  Country: US (occurrence: None)
  Receive Date: 20241115
  Receipt Date: 20241115
  Transmission Date: 20250115
  Serious: Yes (Hospitalization)
  Sender: Public
  Company Number: None

PATIENT
  Age: 76 Year
  Sex: Male

DRUGS (4)
  1. PIPERACILLIN SODIUM\TAZOBACTAM SODIUM [Suspect]
     Active Substance: PIPERACILLIN SODIUM\TAZOBACTAM SODIUM
     Indication: Infection
     Dosage: 4.50 G GRAM (S) 4 TIMES A DAY INTRAVENOUS?
     Route: 042
     Dates: end: 20240926
  2. CEMIPLIMAB-RWLC [Suspect]
     Active Substance: CEMIPLIMAB-RWLC
     Dosage: 350.00 MG ONCE  INTRAVENOUS?
     Route: 042
     Dates: start: 20240917, end: 20240917
  3. AMOXICILLIN [Suspect]
     Active Substance: AMOXICILLIN
  4. BACTRIM [Suspect]
     Active Substance: SULFAMETHOXAZOLE\TRIMETHOPRIM

REACTIONS (4)
  - Pyrexia [None]
  - Rash macular [None]
  - Chills [None]
  - Drug eruption [None]

NARRATIVE: CASE EVENT DATE: 20240922
